FAERS Safety Report 18447061 (Version 2)
Quarter: 2021Q4

REPORT INFORMATION
  Report Type: Spontaneous
  Country: US (occurrence: US)
  Receive Date: 20201030
  Receipt Date: 20211116
  Transmission Date: 20220303
  Serious: No
  Sender: FDA-Public Use
  Company Number: US-NOVOPROD-746952

PATIENT
  Age: 67 Year
  Sex: Male

DRUGS (3)
  1. TRESIBA [Suspect]
     Active Substance: INSULIN DEGLUDEC
     Dosage: 50
     Route: 058
  2. TRESIBA [Suspect]
     Active Substance: INSULIN DEGLUDEC
     Dosage: UNK
     Route: 058
  3. TRESIBA [Suspect]
     Active Substance: INSULIN DEGLUDEC
     Indication: Product used for unknown indication
     Dosage: 50 IU, QD
     Route: 058

REACTIONS (7)
  - Hypoaesthesia [Unknown]
  - Burning sensation [Unknown]
  - Weight decreased [Unknown]
  - Limb discomfort [Recovered/Resolved with Sequelae]
  - Limb discomfort [Recovered/Resolved with Sequelae]
  - Product contamination [Unknown]
  - Product contamination [Recovering/Resolving]

NARRATIVE: CASE EVENT DATE: 20200810
